FAERS Safety Report 9719894 (Version 1)
Quarter: 2013Q4

REPORT INFORMATION
  Report Type: Spontaneous
  Country: US (occurrence: US)
  Receive Date: 20131128
  Receipt Date: 20131128
  Transmission Date: 20140711
  Serious: Yes (Other)
  Sender: FDA-Public Use
  Company Number: US-ASTRAZENECA-2013SE85816

PATIENT
  Age: 45 Year
  Sex: Male

DRUGS (3)
  1. SEROQUEL XR [Suspect]
     Route: 048
  2. SEROQUEL XR [Suspect]
     Route: 048
  3. EFFEXOR [Concomitant]

REACTIONS (3)
  - Pancreatitis [Recovered/Resolved with Sequelae]
  - Psychotic disorder [Unknown]
  - Therapy cessation [Unknown]
